FAERS Safety Report 13450825 (Version 1)
Quarter: 2017Q2

REPORT INFORMATION
  Report Type: Spontaneous
  Country: US (occurrence: US)
  Receive Date: 20170415
  Receipt Date: 20170415
  Transmission Date: 20170830
  Serious: Yes (Other)
  Sender: FDA-Public Use
  Company Number: None

PATIENT
  Age: 54 Year
  Sex: Female
  Weight: 72 kg

DRUGS (4)
  1. NOVO LOG [Concomitant]
  2. LEVAMIR [Concomitant]
  3. GLIMEPRIDE [Concomitant]
     Active Substance: GLIMEPIRIDE
  4. BYDUREON [Suspect]
     Active Substance: EXENATIDE
     Indication: DIABETES MELLITUS
     Dosage: ?          QUANTITY:2 INJECTION(S);OTHER FREQUENCY:WEEKLY;?
     Route: 058
     Dates: start: 20170107, end: 20170128

REACTIONS (3)
  - Injection site infection [None]
  - Product quality issue [None]
  - Dermal absorption impaired [None]

NARRATIVE: CASE EVENT DATE: 20170116
